FAERS Safety Report 4804333-6 (Version None)
Quarter: 2005Q4

REPORT INFORMATION
  Report Type: 
  Country: None (occurrence: None)
  Receive Date: 20051017
  Receipt Date: 20051007
  Transmission Date: 20060501
  Serious: Yes (Other)
  Sender: FDA-Public Use
  Company Number: 2005114008

PATIENT
  Age: 6 Year
  Sex: Male

DRUGS (3)
  1. ZYRTEC [Suspect]
     Indication: ILL-DEFINED DISORDER
  2. CLARINEX [Suspect]
     Indication: ILL-DEFINED DISORDER
  3. ALLERGY MEDICATION (ALLERGY MEDICATION) [Suspect]
     Indication: ILL-DEFINED DISORDER

REACTIONS (5)
  - DYSKINESIA [None]
  - EAR OPERATION [None]
  - EYE MOVEMENT DISORDER [None]
  - TIC [None]
  - TOURETTE'S DISORDER [None]
